FAERS Safety Report 19498503 (Version 6)
Quarter: 2024Q3

REPORT INFORMATION
  Report Type: Report from Study
  Country: CA (occurrence: CA)
  Receive Date: 20210706
  Receipt Date: 20240918
  Transmission Date: 20241017
  Serious: Yes (Hospitalization, Other)
  Sender: EXELIXIS
  Company Number: CA-EXELIXIS-CABO-21039968

PATIENT
  Age: 47 Year
  Sex: Male

DRUGS (7)
  1. CABOMETYX [Suspect]
     Active Substance: CABOZANTINIB S-MALATE
     Indication: Renal cell carcinoma
     Dosage: 60 MG, QD
     Route: 048
     Dates: start: 20210423
  2. CABOMETYX [Suspect]
     Active Substance: CABOZANTINIB S-MALATE
     Dosage: 40 MG, QD
     Route: 048
  3. CABOMETYX [Suspect]
     Active Substance: CABOZANTINIB S-MALATE
     Dosage: 40 MG, 1 WEEK ON AND 10 CALENDER DAYS OFF
     Route: 048
  4. CABOMETYX [Suspect]
     Active Substance: CABOZANTINIB S-MALATE
     Dosage: 20 MG
     Route: 048
  5. CABOMETYX [Suspect]
     Active Substance: CABOZANTINIB S-MALATE
     Dosage: 20 MG, QD TAKE FOR 7 DAYS, FOLLOWED BY 14 DAYS OFF.
     Route: 048
  6. LEVOTHYROXINE [Concomitant]
     Active Substance: LEVOTHYROXINE\LEVOTHYROXINE SODIUM
     Dosage: UNK
  7. PREDNISONE [Concomitant]
     Active Substance: PREDNISONE
     Dosage: 5 MG (DISCONTINUED)

REACTIONS (8)
  - Gastrointestinal disorder [Unknown]
  - Dehydration [Unknown]
  - Malignant neoplasm progression [Unknown]
  - Weight gain poor [Unknown]
  - Diarrhoea [Not Recovered/Not Resolved]
  - Drug intolerance [Unknown]
  - Inappropriate schedule of product administration [Unknown]
  - Inappropriate schedule of product administration [Unknown]
